FAERS Safety Report 6248052-0 (Version None)
Quarter: 2009Q2

REPORT INFORMATION
  Report Type: 
  Country: None (occurrence: None)
  Receive Date: 20090626
  Receipt Date: 20090623
  Transmission Date: 20091009
  Serious: Yes (Other)
  Sender: FDA-Public Use
  Company Number: US-JNJCH-2009015257

PATIENT
  Age: 65 Year
  Weight: 65.3 kg

DRUGS (6)
  1. COOL MINT LISTERINE [Suspect]
     Indication: TOOTHACHE
     Dosage: TEXT:ONE TIME
     Route: 048
  2. ATENOLOL [Concomitant]
     Indication: DRUG USE FOR UNKNOWN INDICATION
     Dosage: TEXT:100 MG
     Route: 065
  3. SIMVASTATIN [Concomitant]
     Indication: DRUG USE FOR UNKNOWN INDICATION
     Dosage: TEXT:20 MG
     Route: 065
  4. HYDROCHLOROTHIAZIDE [Concomitant]
     Indication: DRUG USE FOR UNKNOWN INDICATION
     Dosage: TEXT:25 MG
     Route: 065
  5. ASPIRIN [Concomitant]
     Indication: DRUG USE FOR UNKNOWN INDICATION
     Dosage: TEXT:325 MG
     Route: 065
  6. DOCUSATE CALCIUM [Concomitant]
     Indication: DRUG USE FOR UNKNOWN INDICATION
     Dosage: TEXT:240 MG
     Route: 065

REACTIONS (3)
  - DRUG ADMINISTRATION ERROR [None]
  - HEART RATE INCREASED [None]
  - OFF LABEL USE [None]
